FAERS Safety Report 15895899 (Version 1)
Quarter: 2019Q1

REPORT INFORMATION
  Report Type: Spontaneous
  Country: GB (occurrence: IT)
  Receive Date: 20190131
  Receipt Date: 20190131
  Transmission Date: 20190417
  Serious: Yes (Other)
  Sender: FDA-Public Use
  Company Number: IT-FRESENIUS KABI-FK201900941

PATIENT
  Age: 73 Year
  Sex: Female

DRUGS (1)
  1. LEVOFLOXACIN (MANUFACTURER UNKNOWN) [Suspect]
     Active Substance: LEVOFLOXACIN
     Indication: PNEUMONITIS
     Route: 041
     Dates: start: 20181225, end: 20181227

REACTIONS (2)
  - Cholestasis [Recovered/Resolved]
  - Hepatic necrosis [Recovered/Resolved]

NARRATIVE: CASE EVENT DATE: 20181227
